FAERS Safety Report 11575065 (Version 1)
Quarter: 2015Q3

REPORT INFORMATION
  Report Type: Spontaneous
  Country: US (occurrence: US)
  Receive Date: 20150930
  Receipt Date: 20150930
  Transmission Date: 20151125
  Serious: Yes (Other)
  Sender: FDA-Public Use
  Company Number: US-ROCHE-1543290

PATIENT
  Sex: Female

DRUGS (3)
  1. LUCENTIS [Suspect]
     Active Substance: RANIBIZUMAB
     Indication: MACULAR OEDEMA
     Dosage: IN BOTH EYE
     Route: 050
  2. SIMBRINZA [Concomitant]
     Active Substance: BRIMONIDINE TARTRATE\BRINZOLAMIDE
     Indication: INTRAOCULAR PRESSURE TEST
     Route: 047
  3. LATANOPROST. [Concomitant]
     Active Substance: LATANOPROST
     Indication: INTRAOCULAR PRESSURE TEST
     Dosage: AT NIGHT
     Route: 047

REACTIONS (6)
  - Vision blurred [Not Recovered/Not Resolved]
  - Eye pain [Unknown]
  - Glaucoma [Unknown]
  - Intraocular pressure increased [Recovered/Resolved]
  - Eye irritation [Not Recovered/Not Resolved]
  - Drug dose omission [Unknown]
